FAERS Safety Report 5932863-2 (Version None)
Quarter: 2008Q4

REPORT INFORMATION
  Report Type: 
  Country: None (occurrence: None)
  Receive Date: 20081028
  Receipt Date: 20081016
  Transmission Date: 20090506
  Serious: Yes (Hospitalization, Other)
  Sender: FDA-Public Use
  Company Number: US-AVENTIS-200615099US

PATIENT
  Sex: Female
  Weight: 52.27 kg

DRUGS (6)
  1. KETEK [Suspect]
     Indication: SINUSITIS
     Route: 048
     Dates: start: 20060301, end: 20060327
  2. KETEK [Suspect]
     Indication: RHINITIS
     Route: 048
     Dates: start: 20060301, end: 20060327
  3. SINGULAIR [Concomitant]
     Dates: end: 20080301
  4. SYNTHROID [Concomitant]
  5. ORAL CONTRACEPTIVE NOS [Concomitant]
     Dosage: DOSE: UNKNOWN
  6. PREDNISONE TAB [Concomitant]
     Dosage: DOSE: UNK
     Dates: start: 20060301

REACTIONS (17)
  - ALANINE AMINOTRANSFERASE INCREASED [None]
  - ANAEMIA [None]
  - ANOREXIA [None]
  - ASPARTATE AMINOTRANSFERASE INCREASED [None]
  - BLOOD ALKALINE PHOSPHATASE INCREASED [None]
  - BURNING SENSATION [None]
  - DEHYDRATION [None]
  - DIPLOPIA [None]
  - DIZZINESS [None]
  - HEPATITIS [None]
  - LETHARGY [None]
  - PAIN [None]
  - PALPITATIONS [None]
  - PYREXIA [None]
  - SWELLING FACE [None]
  - SYNCOPE [None]
  - URINARY INCONTINENCE [None]
